FAERS Safety Report 8022097-2 (Version None)
Quarter: 2012Q1

REPORT INFORMATION
  Report Type: 
  Country: None (occurrence: None)
  Receive Date: 20120104
  Receipt Date: 20111229
  Transmission Date: 20120608
  Serious: Yes (Other)
  Sender: FDA-Public Use
  Company Number: US-BAYER-200916927NA

PATIENT
  Age: 22 Year
  Sex: Female
  Weight: 54.091 kg

DRUGS (3)
  1. XANAX [Concomitant]
     Indication: ANXIETY
     Dosage: 0.5 MG (DAILY DOSE), , ORAL
     Route: 048
  2. ZOLOFT [Concomitant]
     Indication: ANXIETY
     Dosage: 50 MG/DAY
     Route: 048
  3. MIRENA [Suspect]
     Indication: CONTRACEPTION
     Dosage: CONTINUOUS
     Route: 015
     Dates: start: 20070927, end: 20091102

REACTIONS (7)
  - NAUSEA [None]
  - DEVICE DISLOCATION [None]
  - POSTPARTUM HAEMORRHAGE [None]
  - MALAISE [None]
  - PREGNANCY WITH CONTRACEPTIVE DEVICE [None]
  - HAEMORRHAGE [None]
  - COMPLICATION OF DEVICE REMOVAL [None]
